FAERS Safety Report 5176072-6 (Version None)
Quarter: 2006Q4

REPORT INFORMATION
  Report Type: 
  Country: None (occurrence: None)
  Receive Date: 20061215
  Receipt Date: 20060701
  Transmission Date: 20070319
  Serious: No
  Sender: FDA-Public Use
  Company Number: US-AMGEN-KDL184961

PATIENT
  Sex: Female

DRUGS (3)
  1. ENBREL [Suspect]
     Indication: RHEUMATOID ARTHRITIS
     Route: 058
     Dates: start: 20060601
  2. METHOTREXATE [Concomitant]
     Dates: start: 20050601
  3. PLACQUENIL [Concomitant]
     Dates: start: 19980101

REACTIONS (4)
  - CONSTIPATION [None]
  - DIARRHOEA [None]
  - FAT TISSUE INCREASED [None]
  - HEADACHE [None]
